FAERS Safety Report 6695970-5 (Version None)
Quarter: 2010Q2

REPORT INFORMATION
  Report Type: 
  Country: None (occurrence: None)
  Receive Date: 20100423
  Receipt Date: 20100423
  Transmission Date: 20101027
  Serious: No
  Sender: FDA-Public Use
  Company Number: None

PATIENT
  Age: 32 Year
  Sex: Female
  Weight: 75.5 kg

DRUGS (1)
  1. FLAGYL [Suspect]
     Dosage: 500 BID ORAL
     Route: 048
     Dates: start: 20100401, end: 20100407

REACTIONS (1)
  - TYPE IV HYPERSENSITIVITY REACTION [None]
